FAERS Safety Report 7768429-1 (Version None)
Quarter: 2011Q3

REPORT INFORMATION
  Report Type: 
  Country: None (occurrence: None)
  Receive Date: 20110922
  Receipt Date: 20110428
  Transmission Date: 20111222
  Serious: No
  Sender: FDA-Public Use
  Company Number: US-ASTRAZENECA-2011SE25729

PATIENT
  Age: 40 Year
  Sex: Male
  Weight: 113.4 kg

DRUGS (13)
  1. VALIUM [Concomitant]
     Indication: BACK PAIN
  2. DEPAKOTE [Concomitant]
  3. LITHIUM CARBONATE [Concomitant]
  4. MORPHINE [Concomitant]
     Indication: BACK PAIN
  5. FISH OIL [Concomitant]
  6. NEXIUM [Concomitant]
     Indication: GASTROOESOPHAGEAL REFLUX DISEASE
  7. RISPERDAL [Concomitant]
  8. SEROQUEL [Suspect]
     Dosage: 100MG NOON AND 100MG HS
     Route: 048
  9. VALIUM [Concomitant]
     Indication: ANXIETY
  10. SEROQUEL [Suspect]
     Indication: BIPOLAR DISORDER
     Dosage: 200MG IN AM AND 200MG AT NIGHT
     Route: 048
     Dates: start: 20080101
  11. SEROQUEL [Suspect]
     Dosage: 25MG THREE TIMES DAILY
     Route: 048
  12. HALDOL [Concomitant]
  13. THORAZINE [Concomitant]

REACTIONS (2)
  - THERAPEUTIC RESPONSE UNEXPECTED [None]
  - SEDATION [None]
